FAERS Safety Report 7571053-7 (Version None)
Quarter: 2011Q2

REPORT INFORMATION
  Report Type: 
  Country: None (occurrence: None)
  Receive Date: 20110624
  Receipt Date: 20110616
  Transmission Date: 20111010
  Serious: Yes (Other)
  Sender: FDA-Public Use
  Company Number: US-ROCHE-784655

PATIENT
  Sex: Female
  Weight: 63.6 kg

DRUGS (3)
  1. KLONOPIN [Suspect]
     Indication: ANXIETY
     Route: 048
  2. KLONOPIN [Suspect]
     Dosage: RESTARTED
     Route: 048
  3. ATIVAN [Concomitant]

REACTIONS (1)
  - SUICIDE ATTEMPT [None]
